FAERS Safety Report 4666338-8 (Version None)
Quarter: 2005Q2

REPORT INFORMATION
  Report Type: 
  Country: None (occurrence: None)
  Receive Date: 20050518
  Receipt Date: 20050509
  Transmission Date: 20051028
  Serious: Yes (Hospitalization)
  Sender: FDA-Public Use
  Company Number: 2005-05-0770

PATIENT
  Sex: Female

DRUGS (1)
  1. ALBUTEROL SULFATE AUTOHALER [Suspect]
     Indication: ASTHMA
     Dosage: UNKNOWN ORAL AER INH
     Route: 048
     Dates: start: 19950101

REACTIONS (2)
  - ASTHMA [None]
  - CONDITION AGGRAVATED [None]
